FAERS Safety Report 9107531 (Version 1)
Quarter: 2013Q1

REPORT INFORMATION
  Report Type: Spontaneous
  Country: RO (occurrence: RO)
  Receive Date: 20130221
  Receipt Date: 20130221
  Transmission Date: 20140127
  Serious: Yes (Hospitalization)
  Sender: FDA-Public Use
  Company Number: RO-AMGEN-ROUSP2013010322

PATIENT
  Age: 45 Year
  Sex: Female
  Weight: 57 kg

DRUGS (6)
  1. NEULASTA [Suspect]
     Indication: PRODUCT USED FOR UNKNOWN INDICATION
     Dosage: 6 MG, 24 HR AFTER CHEMO
     Route: 058
     Dates: start: 20130201, end: 20130201
  2. MYOCET [Suspect]
     Indication: METASTASES TO PLEURA
     Dosage: 80 MG, ONCE IN 21 DAYS
     Route: 042
     Dates: start: 20130131, end: 20130131
  3. ENDOXAN [Suspect]
     Indication: METASTASES TO PLEURA
     Dosage: 966 MG, ONCE IN 21 DAYS
     Route: 042
     Dates: start: 20130131, end: 20130131
  4. DEXAMETHAZON [Concomitant]
     Indication: ANTIALLERGIC THERAPY
     Dosage: 8 MG, QD
     Route: 042
     Dates: start: 20130130, end: 20130131
  5. GRANISETRON [Concomitant]
     Indication: ANTIEMETIC SUPPORTIVE CARE
     Dosage: 3 MG, Q12H
     Route: 042
     Dates: start: 20130130, end: 20130131
  6. METOCLOPRAMID                      /00041901/ [Concomitant]
     Indication: ANTIEMETIC SUPPORTIVE CARE
     Dosage: 10 MG, (3CP/2S)
     Route: 048
     Dates: start: 20130130, end: 20130131

REACTIONS (2)
  - Febrile neutropenia [Recovered/Resolved]
  - Chills [Recovered/Resolved]
